FAERS Safety Report 16104466 (Version 1)
Quarter: 2019Q1

REPORT INFORMATION
  Report Type: Spontaneous
  Country: GB (occurrence: GB)
  Receive Date: 20190322
  Receipt Date: 20190322
  Transmission Date: 20190418
  Serious: Yes (Other)
  Sender: FDA-Public Use
  Company Number: GB-GLENMARK PHARMACEUTICALS-2019GMK039641

PATIENT

DRUGS (3)
  1. NEBIVOLOL 2.5 MG TABLETS [Suspect]
     Active Substance: NEBIVOLOL
     Indication: ARRHYTHMIA
     Dosage: 2.5 MG, OD (1 TABLET DAILY) FROM BLUE BOX
     Route: 065
     Dates: start: 201901
  2. NEBIVOLOL 2.5 MG TABLETS [Suspect]
     Active Substance: NEBIVOLOL
     Dosage: 2 DF, PRN (WHITE BOX)
  3. NEBIVOLOL 2.5 MG TABLETS [Suspect]
     Active Substance: NEBIVOLOL
     Indication: ARRHYTHMIA
     Dosage: 2.5 MG, OD (WHITE BOX)
     Route: 065

REACTIONS (6)
  - Pharyngeal oedema [Recovered/Resolved]
  - Adverse event [Unknown]
  - Product use in unapproved indication [Unknown]
  - Food interaction [Unknown]
  - Hypersensitivity [Unknown]
  - Swollen tongue [Recovered/Resolved]

NARRATIVE: CASE EVENT DATE: 201901
